FAERS Safety Report 19710497 (Version 2)
Quarter: 2022Q4

REPORT INFORMATION
  Report Type: Report from Study
  Country: BR (occurrence: BR)
  Receive Date: 20210816
  Receipt Date: 20221117
  Transmission Date: 20230112
  Serious: Yes (Other)
  Sender: FDA-Public Use
  Company Number: BR-NOVARTISPH-NVSC2020BR282759

PATIENT
  Age: 82 Year
  Sex: Female

DRUGS (6)
  1. COSENTYX [Suspect]
     Active Substance: SECUKINUMAB
     Indication: Psoriatic arthropathy
     Dosage: 150 MG, UNKNOWN
     Route: 065
     Dates: start: 202009
  2. COSENTYX [Suspect]
     Active Substance: SECUKINUMAB
     Dosage: 150 MG, UNKNOWN
     Route: 065
     Dates: start: 20201106
  3. COSENTYX [Suspect]
     Active Substance: SECUKINUMAB
     Dosage: 150 MG, QMO
     Route: 065
     Dates: start: 20210209
  4. COSENTYX [Suspect]
     Active Substance: SECUKINUMAB
     Dosage: 150 MG
     Route: 065
     Dates: end: 202103
  5. METHOTREXATE [Concomitant]
     Active Substance: METHOTREXATE
     Indication: Product used for unknown indication
     Dosage: UNK
     Route: 065
  6. ARAVA [Concomitant]
     Active Substance: LEFLUNOMIDE
     Indication: Product used for unknown indication
     Dosage: UNK
     Route: 065

REACTIONS (21)
  - Gastric cancer [Recovered/Resolved]
  - Abdominal pain [Unknown]
  - Nodule [Unknown]
  - Feeling abnormal [Unknown]
  - Rash [Unknown]
  - Rash macular [Unknown]
  - Immune system disorder [Unknown]
  - Poor quality sleep [Unknown]
  - Malaise [Unknown]
  - Aphasia [Unknown]
  - Arthritis [Unknown]
  - Pyrexia [Unknown]
  - Psoriasis [Unknown]
  - Pain [Unknown]
  - Skin exfoliation [Unknown]
  - Wound [Not Recovered/Not Resolved]
  - Back injury [Unknown]
  - Arthralgia [Unknown]
  - Back pain [Unknown]
  - Inappropriate schedule of product administration [Unknown]
  - Drug ineffective [Not Recovered/Not Resolved]

NARRATIVE: CASE EVENT DATE: 20210201
